FAERS Safety Report 13516805 (Version 1)
Quarter: 2017Q2

REPORT INFORMATION
  Report Type: Spontaneous
  Country: NL (occurrence: NL)
  Receive Date: 20170505
  Receipt Date: 20170505
  Transmission Date: 20170830
  Serious: Yes (Other)
  Sender: FDA-Public Use
  Company Number: NL-BAYER-2017-081881

PATIENT
  Age: 2 Year
  Sex: Female

DRUGS (1)
  1. CLARITINE 0.1 % [Suspect]
     Active Substance: LORATADINE
     Dosage: UNK

REACTIONS (2)
  - Pyrexia [Unknown]
  - Seizure [Unknown]
